FAERS Safety Report 11992187 (Version 2)
Quarter: 2019Q1

REPORT INFORMATION
  Report Type: Spontaneous
  Country: US (occurrence: US)
  Receive Date: 20160203
  Receipt Date: 20190125
  Transmission Date: 20190417
  Serious: No
  Sender: FDA-Public Use
  Company Number: US-JNJFOC-20151220334

PATIENT
  Age: 83 Year
  Sex: Female
  Weight: 68.04 kg

DRUGS (2)
  1. TYLENOL EXTRA STRENGTH [Suspect]
     Active Substance: ACETAMINOPHEN
     Indication: ARTHRALGIA
     Dosage: 1/2-1 CAPLET 2XQD
     Route: 048
  2. TYLENOL EXTRA STRENGTH [Suspect]
     Active Substance: ACETAMINOPHEN
     Indication: MUSCULOSKELETAL PAIN
     Dosage: 1/2-1 CAPLET 2XQD
     Route: 048

REACTIONS (2)
  - Incorrect dose administered [Unknown]
  - Underdose [Unknown]
